FAERS Safety Report 24031559 (Version 2)
Quarter: 2024Q4

REPORT INFORMATION
  Report Type: Spontaneous
  Country: US (occurrence: US)
  Receive Date: 20240629
  Receipt Date: 20241001
  Transmission Date: 20250115
  Serious: No
  Sender: NOVARTIS
  Company Number: US-002147023-NVSC2024US133334

PATIENT
  Sex: Female

DRUGS (1)
  1. COSENTYX [Suspect]
     Active Substance: SECUKINUMAB
     Indication: Ankylosing spondylitis
     Dosage: UNK (ONCE WEEKLY FOR 5 WEEKS (WEEKS 0,1,2,3  HEN INJECT EVERY 4 WEEKS THEREAFTER) *INJECTION NOS
     Route: 050

REACTIONS (4)
  - Accidental exposure to product [Unknown]
  - Device deployment issue [Unknown]
  - Product leakage [Unknown]
  - Exposure via skin contact [Unknown]
